FAERS Safety Report 6983468-6 (Version None)
Quarter: 2010Q3

REPORT INFORMATION
  Report Type: 
  Country: None (occurrence: None)
  Receive Date: 20100914
  Receipt Date: 20080605
  Transmission Date: 20110219
  Serious: Yes (Other)
  Sender: FDA-Public Use
  Company Number: US-WYE-H04402508

PATIENT
  Age: 38 Year
  Sex: Male
  Weight: 97.61 kg

DRUGS (1)
  1. ADVIL LIQUI-GELS [Suspect]
     Indication: ANALGESIC THERAPY
     Dosage: 1-4 TABLETS DAILY
     Route: 048
     Dates: end: 20080528

REACTIONS (1)
  - DEAFNESS [None]
